FAERS Safety Report 10003740 (Version 1)
Quarter: 2014Q1

REPORT INFORMATION
  Report Type: Spontaneous
  Country: GB (occurrence: GB)
  Receive Date: 20140312
  Receipt Date: 20140312
  Transmission Date: 20141002
  Serious: Yes (Hospitalization)
  Sender: FDA-Public Use
  Company Number: GB-TEVA-467467ISR

PATIENT
  Age: 82 Year
  Sex: Male
  Weight: 65.31 kg

DRUGS (9)
  1. PREDNISOLONE [Suspect]
     Indication: AUTOIMMUNE DISORDER
     Dosage: 70 MILLIGRAM DAILY; INITIALLY
  2. PREDNISOLONE [Suspect]
     Indication: AUTOIMMUNE DISORDER
     Dosage: 10 MILLIGRAM DAILY;
  3. AMIAS [Concomitant]
     Indication: MYOCARDIAL INFARCTION
     Dosage: 8 MILLIGRAM DAILY;
  4. BUMETANIDE [Concomitant]
     Indication: MYOCARDIAL INFARCTION
     Dosage: 2 MILLIGRAM DAILY;
  5. CARDICOR [Concomitant]
     Indication: MYOCARDIAL INFARCTION
     Dosage: 2.5 MILLIGRAM DAILY;
  6. INFLUENZA VIRUS [Concomitant]
     Dates: start: 20131111, end: 20131111
  7. OMEPRAZOLE [Concomitant]
     Indication: PROPHYLAXIS
     Dosage: 20 MILLIGRAM DAILY;
  8. ASPIRIN [Concomitant]
  9. FOLIC ACID [Concomitant]
     Dosage: 5 MILLIGRAM DAILY;

REACTIONS (1)
  - Type 2 diabetes mellitus [Not Recovered/Not Resolved]
